FAERS Safety Report 4388310-8 (Version None)
Quarter: 2004Q3

REPORT INFORMATION
  Report Type: 
  Country: None (occurrence: None)
  Receive Date: 20040701
  Receipt Date: 20040604
  Transmission Date: 20050211
  Serious: Yes (Life-Threatening, Hospitalization)
  Sender: FDA-Public Use
  Company Number: LT-AMGEN-UK078931

PATIENT
  Sex: Male

DRUGS (2)
  1. DARBEPOETIN ALFA [Suspect]
     Indication: ANAEMIA OF MALIGNANT DISEASE
     Route: 058
     Dates: start: 20040527, end: 20040603
  2. GEMZAR [Suspect]
     Route: 041
     Dates: start: 20040603

REACTIONS (2)
  - HYPOTENSION [None]
  - PYREXIA [None]
